FAERS Safety Report 18882549 (Version 2)
Quarter: 2021Q1

REPORT INFORMATION
  Report Type: Spontaneous
  Country: US (occurrence: US)
  Receive Date: 20210212
  Receipt Date: 20210212
  Transmission Date: 20210420
  Serious: Yes (Hospitalization, Other)
  Sender: FDA-Public Use
  Company Number: US-CELGENEUS-USA-20210201673

PATIENT
  Sex: Male
  Weight: 62.65 kg

DRUGS (2)
  1. REVLIMID [Suspect]
     Active Substance: LENALIDOMIDE
     Indication: MYELODYSPLASTIC SYNDROME
     Dosage: 5 MILLIGRAM
     Route: 048
     Dates: start: 20210120
  2. PROCRIT [Concomitant]
     Active Substance: ERYTHROPOIETIN
     Indication: BLADDER DISORDER
     Route: 065

REACTIONS (8)
  - Dizziness [Unknown]
  - Nausea [Unknown]
  - Pruritus [Unknown]
  - Cough [Unknown]
  - Full blood count decreased [Unknown]
  - Thoracic vertebral fracture [Unknown]
  - Back pain [Unknown]
  - Erythema [Unknown]

NARRATIVE: CASE EVENT DATE: 2021
